FAERS Safety Report 10103364 (Version 1)
Quarter: 2014Q2

REPORT INFORMATION
  Report Type: Spontaneous
  Country: US (occurrence: US)
  Receive Date: 20140424
  Receipt Date: 20140424
  Transmission Date: 20141212
  Serious: Yes (Hospitalization)
  Sender: FDA-Public Use
  Company Number: US-BRISTOL-MYERS SQUIBB COMPANY-20343984

PATIENT
  Age: 93 Year
  Sex: Female

DRUGS (5)
  1. ELIQUIS [Suspect]
  2. FUROSEMIDE [Concomitant]
  3. POTASSIUM [Concomitant]
  4. NITROGLYCERIN PATCH [Concomitant]
  5. COREG [Concomitant]

REACTIONS (4)
  - Epistaxis [Unknown]
  - Lip haemorrhage [Unknown]
  - Haemorrhage [Unknown]
  - Contusion [Unknown]
